FAERS Safety Report 12903728 (Version 1)
Quarter: 2016Q4

REPORT INFORMATION
  Report Type: Spontaneous
  Country: US (occurrence: US)
  Receive Date: 20161102
  Receipt Date: 20161102
  Transmission Date: 20170207
  Serious: No
  Sender: FDA-Public Use
  Company Number: US-HORIZON-ACT-0251-2016

PATIENT
  Age: 12 Year
  Sex: Male

DRUGS (5)
  1. MOTRIN [Concomitant]
     Active Substance: IBUPROFEN
  2. BACTRIM [Concomitant]
     Active Substance: SULFAMETHOXAZOLE\TRIMETHOPRIM
  3. ITRACONAZOLE. [Concomitant]
     Active Substance: ITRACONAZOLE
  4. TYLENOL [Concomitant]
     Active Substance: ACETAMINOPHEN
     Route: 048
  5. ACTIMMUNE [Suspect]
     Active Substance: INTERFERON GAMMA-1B
     Indication: CHRONIC GRANULOMATOUS DISEASE
     Dosage: 45 ?G TIW

REACTIONS (3)
  - Chills [Unknown]
  - Pyrexia [Unknown]
  - Influenza like illness [Unknown]
